FAERS Safety Report 8551879-3 (Version None)
Quarter: 2012Q3

REPORT INFORMATION
  Report Type: 
  Country: None (occurrence: None)
  Receive Date: 20120730
  Receipt Date: 20120725
  Transmission Date: 20120928
  Serious: Yes (Death, Hospitalization)
  Sender: FDA-Public Use
  Company Number: US-GILEAD-2012-0056399

PATIENT
  Sex: Female

DRUGS (2)
  1. LETAIRIS [Suspect]
     Indication: PULMONARY HYPERTENSION
     Dosage: 5 MG, UNK
     Route: 048
     Dates: start: 20090121, end: 20120529
  2. LETAIRIS [Suspect]
     Indication: CARDIAC DISORDER

REACTIONS (7)
  - DISEASE PROGRESSION [None]
  - LIVER FUNCTION TEST ABNORMAL [None]
  - CARDIOPULMONARY FAILURE [None]
  - PAIN IN EXTREMITY [None]
  - CHROMATURIA [None]
  - SEPTIC SHOCK [None]
  - YELLOW SKIN [None]
